FAERS Safety Report 15760484 (Version 1)
Quarter: 2018Q4

REPORT INFORMATION
  Report Type: Spontaneous
  Country: US (occurrence: US)
  Receive Date: 20181226
  Receipt Date: 20181226
  Transmission Date: 20190205
  Serious: Yes (Death, Hospitalization)
  Sender: FDA-Public Use
  Company Number: US-DSJP-DSU-2017-140981

PATIENT

DRUGS (1)
  1. BENICAR HCT [Suspect]
     Active Substance: HYDROCHLOROTHIAZIDE\OLMESARTAN MEDOXOMIL
     Indication: PRODUCT USED FOR UNKNOWN INDICATION
     Dosage: 20-12.5 MG, QD
     Route: 048
     Dates: start: 2009, end: 20140512

REACTIONS (3)
  - Gastrointestinal haemorrhage [Recovering/Resolving]
  - Sprue-like enteropathy [Recovering/Resolving]
  - Proctalgia [Recovered/Resolved]

NARRATIVE: CASE EVENT DATE: 20100101
